FAERS Safety Report 23405142 (Version 4)
Quarter: 2024Q1

REPORT INFORMATION
  Report Type: Report from Study
  Country: US (occurrence: US)
  Receive Date: 20240116
  Receipt Date: 20240320
  Transmission Date: 20240410
  Serious: Yes (Other)
  Sender: FDA-Public Use
  Company Number: US-UCBSA-2023047216

PATIENT
  Age: 32 Year
  Sex: Male

DRUGS (6)
  1. FINTEPLA [Suspect]
     Active Substance: FENFLURAMINE
     Indication: Lennox-Gastaut syndrome
     Dosage: 2 ML BID FOR 7 DAYS
     Dates: start: 20230912
  2. FINTEPLA [Suspect]
     Active Substance: FENFLURAMINE
     Dosage: 4 ML BID FOR 7 DAYS
  3. FINTEPLA [Suspect]
     Active Substance: FENFLURAMINE
     Dosage: 6 ML BID THEREAFTER
  4. FINTEPLA [Suspect]
     Active Substance: FENFLURAMINE
     Dosage: 6 MILLILITER, 2X/DAY (BID)
  5. FINTEPLA [Suspect]
     Active Substance: FENFLURAMINE
     Dosage: 6 MILLILITER, 2X/DAY (BID)
  6. FINTEPLA [Suspect]
     Active Substance: FENFLURAMINE
     Dosage: 6 MILLILITER, 2X/DAY (BID)

REACTIONS (6)
  - Seizure [Not Recovered/Not Resolved]
  - Hypersomnia [Not Recovered/Not Resolved]
  - Decreased appetite [Not Recovered/Not Resolved]
  - Weight decreased [Not Recovered/Not Resolved]
  - Head banging [Not Recovered/Not Resolved]
  - Somnolence [Not Recovered/Not Resolved]

NARRATIVE: CASE EVENT DATE: 20230913
